FAERS Safety Report 6499836-5 (Version None)
Quarter: 2009Q4

REPORT INFORMATION
  Report Type: 
  Country: None (occurrence: None)
  Receive Date: 20091214
  Receipt Date: 20091201
  Transmission Date: 20100525
  Serious: Yes (Death, Hospitalization)
  Sender: FDA-Public Use
  Company Number: 093

PATIENT
  Age: 85 Year
  Sex: Male
  Weight: 51.2565 kg

DRUGS (5)
  1. FAZACLO ODT [Suspect]
     Indication: AGITATION
     Dosage: 12.5 MG PO DAILY
     Route: 048
     Dates: start: 20070104, end: 20070107
  2. ABILIFY [Concomitant]
  3. DEPAKOTE [Concomitant]
  4. NEXIUM [Concomitant]
  5. MULTI-VITAMIN [Concomitant]

REACTIONS (1)
  - PARKINSON'S DISEASE [None]
